FAERS Safety Report 21938142 (Version 3)
Quarter: 2024Q2

REPORT INFORMATION
  Report Type: Spontaneous
  Country: US (occurrence: US)
  Receive Date: 20230201
  Receipt Date: 20240604
  Transmission Date: 20240715
  Serious: No
  Sender: FDA-Public Use
  Company Number: US-INCYTE CORPORATION-2021IN011441

PATIENT

DRUGS (1)
  1. PEMAZYRE [Suspect]
     Active Substance: PEMIGATINIB
     Dosage: 13.5 MILLIGRAM, QD  FOR 2 WEEKS ON AND 1 WEEK OFF CYCLES
     Route: 048

REACTIONS (2)
  - Dysphagia [Unknown]
  - Product use complaint [Unknown]
